FAERS Safety Report 5657195-1 (Version None)
Quarter: 2008Q1

REPORT INFORMATION
  Report Type: 
  Country: None (occurrence: None)
  Receive Date: 20080310
  Receipt Date: 20080305
  Transmission Date: 20080703
  Serious: Yes (Death, Hospitalization)
  Sender: FDA-Public Use
  Company Number: SE-BRISTOL-MYERS SQUIBB COMPANY-13312590

PATIENT
  Age: 59 Year
  Sex: Male

DRUGS (11)
  1. DASATINIB [Suspect]
     Indication: CHRONIC MYELOID LEUKAEMIA
     Dosage: 140MG 08JUN TO 08JUL-05; 200MG 08JUL05 TO 17JAN06, 27JAN TO 15FEB06; 140MG 18FEB TO 28FEB06
     Route: 048
     Dates: start: 20060301, end: 20060310
  2. DARBEPOETIN ALFA [Concomitant]
  3. TRAMADOL HCL [Concomitant]
  4. CYANOCOBALAMIN [Concomitant]
  5. ALLOPURINOL [Concomitant]
  6. ACETAMINOPHEN [Concomitant]
  7. LOPERAMIDE HCL [Concomitant]
  8. FLUCONAZOLE [Concomitant]
  9. FUROSEMIDE [Concomitant]
     Dates: end: 20060228
  10. PREDNISOLONE [Concomitant]
     Dates: end: 20060228
  11. CIPROFLOXACIN [Concomitant]

REACTIONS (4)
  - BLAST CELL COUNT INCREASED [None]
  - DEATH [None]
  - DYSPNOEA [None]
  - PLEURAL EFFUSION [None]
